FAERS Safety Report 12350666 (Version 1)
Quarter: 2016Q2

REPORT INFORMATION
  Report Type: Spontaneous
  Country: US (occurrence: None)
  Receive Date: 20160509
  Receipt Date: 20160509
  Transmission Date: 20160815
  Serious: No
  Sender: FDA-Public Use
  Company Number: None

PATIENT
  Age: 46 Year
  Sex: Male
  Weight: 72.58 kg

DRUGS (4)
  1. ADVIL [Concomitant]
     Active Substance: IBUPROFEN
  2. MOBIC [Concomitant]
     Active Substance: MELOXICAM
  3. ASPIRIN. [Concomitant]
     Active Substance: ASPIRIN
  4. HUMIRA [Suspect]
     Active Substance: ADALIMUMAB
     Indication: ANKYLOSING SPONDYLITIS
     Dosage: 1 INJECTION(S)  14 DAYS  GIVEN INTO/UNDER THE SKIN
     Route: 058
     Dates: start: 20151027, end: 20160416

REACTIONS (2)
  - Paraesthesia [None]
  - Hypoaesthesia [None]

NARRATIVE: CASE EVENT DATE: 20160427
